FAERS Safety Report 4847292-2 (Version None)
Quarter: 2005Q4

REPORT INFORMATION
  Report Type: 
  Country: None (occurrence: None)
  Receive Date: 20051205
  Receipt Date: 20051113
  Transmission Date: 20060501
  Serious: Yes (Hospitalization, Disabling)
  Sender: FDA-Public Use
  Company Number: 414262

PATIENT
  Age: 24 Year
  Sex: Female
  Weight: 45.8 kg

DRUGS (3)
  1. ACCUTANE [Suspect]
     Indication: ACNE
     Dosage: 40 MG DAILY, ORAL
     Route: 048
     Dates: start: 19980713, end: 20000622
  2. BACTRIM DS [Concomitant]
  3. DRYSOL (ALUMINIUM CHLORIDE) [Concomitant]

REACTIONS (76)
  - ADHESION [None]
  - AKATHISIA [None]
  - AMENORRHOEA [None]
  - ANAEMIA [None]
  - ANKYLOSING SPONDYLITIS [None]
  - ANXIETY [None]
  - ARTHRALGIA [None]
  - ARTHROPOD BITE [None]
  - BACK PAIN [None]
  - BLOOD CHOLESTEROL INCREASED [None]
  - BLOOD TRIGLYCERIDES INCREASED [None]
  - BODY TINEA [None]
  - BUNION [None]
  - CERVICAL DYSPLASIA [None]
  - CERVICITIS [None]
  - CHEILITIS [None]
  - CHEST DISCOMFORT [None]
  - COLITIS ULCERATIVE [None]
  - CYST [None]
  - DEHYDRATION [None]
  - DEPRESSION [None]
  - DERMATITIS [None]
  - DISEASE RECURRENCE [None]
  - DISTURBANCE IN ATTENTION [None]
  - DIZZINESS [None]
  - DRY SKIN [None]
  - DYSPNOEA [None]
  - EAR INJURY [None]
  - EMOTIONAL DISTRESS [None]
  - ERYTHEMA [None]
  - EYE IRRITATION [None]
  - FLATULENCE [None]
  - GASTRITIS [None]
  - GASTROINTESTINAL DISORDER [None]
  - GASTROOESOPHAGEAL REFLUX DISEASE [None]
  - HAEMORRHOIDS [None]
  - HEADACHE [None]
  - HEPATIC ENZYME INCREASED [None]
  - HORDEOLUM [None]
  - HYPERHIDROSIS [None]
  - HYPERMOBILITY SYNDROME [None]
  - HYPONATRAEMIA [None]
  - ILEITIS [None]
  - ILEUS [None]
  - INSOMNIA [None]
  - INTESTINAL HAEMORRHAGE [None]
  - LIMB INJURY [None]
  - MULTI-ORGAN DISORDER [None]
  - MUSCULOSKELETAL CHEST PAIN [None]
  - MUSCULOSKELETAL STIFFNESS [None]
  - NIGHT BLINDNESS [None]
  - OEDEMA PERIPHERAL [None]
  - OSTEOARTHRITIS [None]
  - PAIN [None]
  - PAPILLOMA VIRAL INFECTION [None]
  - PHARYNGITIS [None]
  - PITYRIASIS [None]
  - POST PROCEDURAL COMPLICATION [None]
  - POUCHITIS [None]
  - PRURITUS [None]
  - PSORIASIS [None]
  - RADICULOPATHY [None]
  - ROSACEA [None]
  - SINUSITIS [None]
  - SMALL INTESTINAL OBSTRUCTION [None]
  - SPINAL OSTEOARTHRITIS [None]
  - SPONDYLOARTHROPATHY [None]
  - STRESS [None]
  - SWELLING FACE [None]
  - TENDON INJURY [None]
  - TENDONITIS [None]
  - THERAPY NON-RESPONDER [None]
  - ULCER [None]
  - VERTIGO POSITIONAL [None]
  - VISION BLURRED [None]
  - WEIGHT DECREASED [None]
